FAERS Safety Report 7854749-9 (Version None)
Quarter: 2011Q4

REPORT INFORMATION
  Report Type: 
  Country: None (occurrence: None)
  Receive Date: 20111026
  Receipt Date: 20110830
  Transmission Date: 20120403
  Serious: No
  Sender: FDA-Public Use
  Company Number: US-MUTUAL PHARMACEUTICAL COMPANY, INC.-CLCY20110119

PATIENT
  Sex: Female
  Weight: 72.64 kg

DRUGS (9)
  1. COUMADIN [Concomitant]
     Indication: BLOOD DISORDER
     Route: 048
  2. COUMADIN [Concomitant]
     Route: 048
  3. COLCRYS [Suspect]
     Indication: GOUT
     Route: 048
     Dates: start: 20110829, end: 20110829
  4. DILTIAZEM HCL [Concomitant]
     Indication: DYSPHAGIA
     Route: 048
  5. TYLENOL-500 [Concomitant]
     Indication: BACK PAIN
     Route: 048
  6. FUROSEMIDE [Concomitant]
     Indication: FLUID RETENTION
     Route: 048
  7. MIRAPEX [Concomitant]
     Indication: RESTLESS LEGS SYNDROME
     Route: 048
  8. PROTONIX [Concomitant]
     Indication: GASTROOESOPHAGEAL REFLUX DISEASE
     Route: 048
  9. TRAMADOL HCL [Concomitant]
     Indication: BACK PAIN
     Route: 048

REACTIONS (1)
  - RASH GENERALISED [None]
